FAERS Safety Report 19691563 (Version 1)
Quarter: 2021Q3

REPORT INFORMATION
  Report Type: Spontaneous
  Country: US (occurrence: US)
  Receive Date: 20210812
  Receipt Date: 20210812
  Transmission Date: 20211014
  Serious: No
  Sender: FDA-Public Use
  Company Number: US-PFIZER INC-2021568140

PATIENT
  Age: 74 Year
  Sex: Female
  Weight: 77.56 kg

DRUGS (3)
  1. ALPRAZOLAM. [Suspect]
     Active Substance: ALPRAZOLAM
     Indication: ANXIETY
     Dosage: 0.25 MG, 4X/DAY (AS NEEDED)
     Route: 048
     Dates: start: 20210510, end: 20210513
  2. ALPRAZOLAM. [Suspect]
     Active Substance: ALPRAZOLAM
     Indication: MENIERE^S DISEASE
  3. ALPRAZOLAM. [Suspect]
     Active Substance: ALPRAZOLAM
     Indication: VERTIGO
     Dosage: UNK

REACTIONS (3)
  - Pruritus [Recovered/Resolved]
  - Insomnia [Unknown]
  - Urticaria [Recovered/Resolved]

NARRATIVE: CASE EVENT DATE: 20210510
